FAERS Safety Report 9380859 (Version 1)
Quarter: 2013Q3

REPORT INFORMATION
  Report Type: Spontaneous
  Country: US (occurrence: US)
  Receive Date: 20130703
  Receipt Date: 20130703
  Transmission Date: 20140515
  Serious: Yes (Hospitalization)
  Sender: FDA-Public Use
  Company Number: US-AMGEN-USASP2013046096

PATIENT
  Sex: Female

DRUGS (8)
  1. NEULASTA [Suspect]
     Indication: NEUTROPENIA
     Dosage: UNK
     Route: 065
  2. CHEMOTHERAPEUTICS [Concomitant]
     Indication: EWING^S SARCOMA
     Dosage: UNK
  3. PROZAC [Concomitant]
     Dosage: UNK
  4. WELLBUTRIN [Concomitant]
     Dosage: UNK
  5. STOOL SOFTENER [Concomitant]
     Dosage: UNK
  6. PROTONIX [Concomitant]
     Dosage: UNK
  7. ANALGESICS [Concomitant]
     Dosage: UNK
  8. OXYCODONE [Concomitant]
     Dosage: UNK

REACTIONS (3)
  - Gastrointestinal tube insertion [Unknown]
  - Mouth ulceration [Recovered/Resolved]
  - Weight decreased [Unknown]
